FAERS Safety Report 9756421 (Version 1)
Quarter: 2013Q4

REPORT INFORMATION
  Report Type: Spontaneous
  Country: US (occurrence: US)
  Receive Date: 20131213
  Receipt Date: 20131213
  Transmission Date: 20140711
  Serious: No
  Sender: FDA-Public Use
  Company Number: US-GLAXOSMITHKLINE-A1040794A

PATIENT
  Sex: Male

DRUGS (1)
  1. NICODERM CQ CLEAR 21MG [Suspect]
     Indication: EX-TOBACCO USER
     Dates: start: 201308

REACTIONS (7)
  - Application site pruritus [Recovered/Resolved]
  - Pain in extremity [Recovered/Resolved]
  - Application site papules [Recovered/Resolved]
  - Application site vesicles [Recovered/Resolved]
  - Paraesthesia [Recovered/Resolved]
  - Local swelling [Recovered/Resolved]
  - Hypersensitivity [Recovered/Resolved]
